FAERS Safety Report 22133805 (Version 4)
Quarter: 2023Q2

REPORT INFORMATION
  Report Type: Spontaneous
  Country: US (occurrence: US)
  Receive Date: 20230324
  Receipt Date: 20230620
  Transmission Date: 20230721
  Serious: No
  Sender: FDA-Public Use
  Company Number: US-SA-SAC20230322000138

PATIENT
  Age: 41 Year
  Sex: Female

DRUGS (10)
  1. DUPIXENT [Suspect]
     Active Substance: DUPILUMAB
     Indication: Dermatitis atopic
     Dosage: 300 MG, QOW
     Route: 058
     Dates: start: 20221202
  2. DUPIXENT [Suspect]
     Active Substance: DUPILUMAB
     Indication: Neurodermatitis
  3. BUPROPION [Concomitant]
     Active Substance: BUPROPION
     Dosage: UNK
  4. GABAPENTIN [Concomitant]
     Active Substance: GABAPENTIN
     Dosage: UNK
  5. LITHIUM [Concomitant]
     Active Substance: LITHIUM
     Dosage: UNK
  6. TRAZODONE [Concomitant]
     Active Substance: TRAZODONE HYDROCHLORIDE
     Dosage: UNK
  7. TRILEPTAL [Concomitant]
     Active Substance: OXCARBAZEPINE
     Dosage: UNK
  8. ZYPREXA [Concomitant]
     Active Substance: OLANZAPINE
     Dosage: UNK
  9. VITAMIN C GUMMY BEARS [Concomitant]
     Dosage: UNK
  10. LAMICTAL [Concomitant]
     Active Substance: LAMOTRIGINE

REACTIONS (4)
  - Anxiety [Unknown]
  - Neurodermatitis [Unknown]
  - Dermatitis atopic [Unknown]
  - Drug ineffective [Unknown]
